FAERS Safety Report 5174703-8 (Version None)
Quarter: 2006Q4

REPORT INFORMATION
  Report Type: 
  Country: None (occurrence: None)
  Receive Date: 20061206
  Receipt Date: 20061127
  Transmission Date: 20070319
  Serious: Yes (Life-Threatening)
  Sender: FDA-Public Use
  Company Number: 2006144622

PATIENT
  Age: 59 Year
  Sex: Female
  Weight: 55 kg

DRUGS (5)
  1. SOLU-MODERIN (METHYLPREDNISOLONE SODIUM SUCCINATE) [Suspect]
     Dosage: 125 MG, INTRAVENOUS
     Route: 042
     Dates: start: 20060906, end: 20060906
  2. OXALIPLATIN [Suspect]
     Indication: COLON CANCER
     Dosage: 130 MG, INTRAVENOUS
     Route: 042
     Dates: start: 20060906, end: 20060906
  3. FOLINIC ACID (FOLINIC ACID) [Suspect]
     Indication: COLON CANCER
     Dosage: 600 MG, INTRAVENOUS
     Route: 042
     Dates: start: 20060906, end: 20060906
  4. FLUOROURACIL [Suspect]
     Indication: COLON CANCER
     Dosage: 4.2 GRAM, INTRAVENOUS
     Route: 042
     Dates: start: 20060906, end: 20060906
  5. NEBIVOLOL HCL [Concomitant]

REACTIONS (3)
  - BRONCHOSPASM [None]
  - FLUSHING [None]
  - PRURITUS [None]
